FAERS Safety Report 6485153-6 (Version None)
Quarter: 2009Q4

REPORT INFORMATION
  Report Type: 
  Country: None (occurrence: None)
  Receive Date: 20091209
  Receipt Date: 20090612
  Transmission Date: 20100525
  Serious: No
  Sender: FDA-Public Use
  Company Number: US-AMGEN-KDL351448

PATIENT
  Sex: Female
  Weight: 54.5 kg

DRUGS (5)
  1. ENBREL [Suspect]
     Indication: RHEUMATOID ARTHRITIS
     Route: 058
     Dates: start: 20011105
  2. ARAVA [Concomitant]
     Dates: start: 20011101
  3. FOLIC ACID [Concomitant]
     Dates: start: 20030618
  4. MOBIC [Concomitant]
     Dates: start: 20061018
  5. ZOLEDRONIC ACID [Concomitant]
     Dates: start: 20090604

REACTIONS (2)
  - HEADACHE [None]
  - MENOPAUSE [None]
